FAERS Safety Report 8222721-5 (Version None)
Quarter: 2012Q1

REPORT INFORMATION
  Report Type: 
  Country: None (occurrence: None)
  Receive Date: 20120320
  Receipt Date: 20120308
  Transmission Date: 20120608
  Serious: Yes (Hospitalization)
  Sender: FDA-Public Use
  Company Number: US-ELI_LILLY_AND_COMPANY-US201203002737

PATIENT
  Sex: Female

DRUGS (8)
  1. MELOXICAM [Concomitant]
     Dosage: UNK, UNKNOWN
  2. ASPIRIN [Concomitant]
     Dosage: 81 MG, UNKNOWN
  3. ADVAIR DISKUS 100/50 [Concomitant]
     Dosage: UNK, UNKNOWN
  4. LOVASTATIN [Concomitant]
     Dosage: UNK, UNKNOWN
  5. PROTONIX [Concomitant]
     Dosage: UNK, UNKNOWN
  6. FORTEO [Suspect]
     Indication: OSTEOPOROSIS
     Dosage: 20 UG, QD
     Dates: end: 20120201
  7. CALCIUM CARBONATE [Concomitant]
     Dosage: UNK, UNKNOWN
  8. SPIRIVA [Concomitant]
     Dosage: UNK, UNKNOWN

REACTIONS (2)
  - INFLUENZA [None]
  - PRURITUS [None]
